FAERS Safety Report 22109319 (Version 1)
Quarter: 2023Q1

REPORT INFORMATION
  Report Type: Spontaneous
  Country: US (occurrence: None)
  Receive Date: 20230317
  Receipt Date: 20230317
  Transmission Date: 20230418
  Serious: No
  Sender: FDA-Public Use
  Company Number: 2023A053248

PATIENT
  Sex: Female
  Weight: 116.6 kg

DRUGS (1)
  1. FARXIGA [Suspect]
     Active Substance: DAPAGLIFLOZIN PROPANEDIOL
     Indication: Cardiac failure congestive
     Route: 048
     Dates: start: 20230218, end: 20230228

REACTIONS (15)
  - Fatigue [Recovering/Resolving]
  - Irritability [Recovering/Resolving]
  - Feeling jittery [Recovering/Resolving]
  - Device malfunction [Recovering/Resolving]
  - Malaise [Recovering/Resolving]
  - Dyspnoea [Recovering/Resolving]
  - Asthenia [Recovering/Resolving]
  - Dyspnoea [Recovering/Resolving]
  - Nausea [Recovering/Resolving]
  - Fatigue [Recovering/Resolving]
  - Depressed mood [Recovering/Resolving]
  - Tremor [Recovering/Resolving]
  - Adverse event [Recovering/Resolving]
  - Diabetes mellitus inadequate control [Recovering/Resolving]
  - Decreased appetite [Recovering/Resolving]
